FAERS Safety Report 19755974 (Version 1)
Quarter: 2021Q3

REPORT INFORMATION
  Report Type: Spontaneous
  Country: JP (occurrence: JP)
  Receive Date: 20210827
  Receipt Date: 20210827
  Transmission Date: 20211014
  Serious: Yes (Other)
  Sender: FDA-Public Use
  Company Number: JP-HQ SPECIALTY-JP-2021INT000150

PATIENT
  Age: 59 Year
  Sex: Female

DRUGS (17)
  1. CIPROFLOXACIN. [Suspect]
     Active Substance: CIPROFLOXACIN
     Dosage: 200 MG, TID ON DAYS 5?15 (DCF COURSE 3)
  2. CISPLATIN. [Suspect]
     Active Substance: CISPLATIN
     Dosage: 55 MG/M2, DAY 1 (DCF COURSE 3)
     Route: 042
  3. CIPROFLOXACIN. [Suspect]
     Active Substance: CIPROFLOXACIN
     Dosage: 200 MG, TID ON DAYS 5?15 (DCF COURSE 2)
     Route: 048
  4. RADIOTHERAPY [Suspect]
     Active Substance: RADIATION THERAPY
     Indication: OESOPHAGEAL SQUAMOUS CELL CARCINOMA
     Dosage: 2 GY, QD (DCRT TOTAL 60 GY DELIVERED WITH 10 MV XRAYS)
     Route: 065
  5. DOCETAXEL. [Suspect]
     Active Substance: DOCETAXEL
     Dosage: 55 MG/M2, DAY 1 (DCF COURSE 3)
     Route: 042
  6. CISPLATIN. [Suspect]
     Active Substance: CISPLATIN
     Dosage: 55 MG/M2, DAYS 1 AND 28 (DCRTCOURSE 2)
     Route: 042
  7. DOCETAXEL. [Suspect]
     Active Substance: DOCETAXEL
     Indication: OESOPHAGEAL SQUAMOUS CELL CARCINOMA
     Dosage: 70 MG/M2, DAY 1 (DCF COURSE  1)
     Route: 042
  8. CIPROFLOXACIN. [Suspect]
     Active Substance: CIPROFLOXACIN
     Indication: PROPHYLAXIS
     Dosage: 200 MG, TID ON DAYS 5?15 (DCF COURSE 1)
     Route: 048
  9. CISPLATIN. [Suspect]
     Active Substance: CISPLATIN
     Indication: OESOPHAGEAL SQUAMOUS CELL CARCINOMA
     Dosage: 70 MG/M2, DAY 1 (DCF COURSE 1, )
     Route: 042
  10. CISPLATIN. [Suspect]
     Active Substance: CISPLATIN
     Dosage: 55 MG/M2, DAYS 1 AND 28 (DCRTCOURSE 1)
     Route: 042
  11. FLUOROURACIL 5 FU [Suspect]
     Active Substance: FLUOROURACIL
     Dosage: 600 MG/M2, DAYS 1?5 (DCF COURSE 2)
     Route: 042
  12. CISPLATIN. [Suspect]
     Active Substance: CISPLATIN
     Dosage: 55 MG/M2, DAY 1 (DCF COURSE 2)
     Route: 042
  13. DOCETAXEL. [Suspect]
     Active Substance: DOCETAXEL
     Dosage: 55 MG/M2, DAY 1 (DCF COURSE 2)
     Route: 042
  14. FLUOROURACIL 5 FU [Suspect]
     Active Substance: FLUOROURACIL
     Dosage: 600 MG/KG, DAYS 1?5 (DCF COURSE 3)
     Route: 042
  15. FLUOROURACIL 5 FU [Suspect]
     Active Substance: FLUOROURACIL
     Indication: OESOPHAGEAL SQUAMOUS CELL CARCINOMA
     Dosage: 750 MG/M2, DAYS 1?5 (DCF COURSE 1)
     Route: 042
  16. FLUOROURACIL 5 FU [Suspect]
     Active Substance: FLUOROURACIL
     Dosage: 550 MG/M2, DAYS 1?4 AND 28?31 (DCRT COURSE 1)
     Route: 042
  17. FLUOROURACIL 5 FU [Suspect]
     Active Substance: FLUOROURACIL
     Dosage: 550 MG/M2, DAYS 1?4 AND 28?31 (DCRT COURSE 2)
     Route: 042

REACTIONS (2)
  - Deep vein thrombosis [Unknown]
  - Pulmonary embolism [Unknown]
